FAERS Safety Report 4472470-4 (Version None)
Quarter: 2004Q4

REPORT INFORMATION
  Report Type: 
  Country: None (occurrence: None)
  Receive Date: 20041007
  Receipt Date: 20040923
  Transmission Date: 20050328
  Serious: Yes (Hospitalization)
  Sender: FDA-Public Use
  Company Number: 208974

PATIENT
  Age: 65 Year
  Sex: Male
  Weight: 81.6 kg

DRUGS (7)
  1. BEVACIZUMAB (BEVACIZUMAB) PWDR + SOLVENT INFUSION SOLN 100 MG [Suspect]
     Indication: METASTATIC RENAL CELL CARCINOMA
     Dosage: 813 MG, INTRAVENOUS
     Route: 042
     Dates: start: 20030711
  2. ERLOTINIB (ERLOTINIB) TABLET [Suspect]
     Indication: METASTATIC RENAL CELL CARCINOMA
     Dosage: 150 MG, QD, ORAL
     Route: 048
     Dates: start: 20030711
  3. LORTAB [Concomitant]
  4. TRI-CHLOR (TRICHLOROACETIC ACID) [Concomitant]
  5. ASTELIN NASAL SPRAY (AZELASTINE HYDROCHLORIDE) [Concomitant]
  6. BUSPAR [Concomitant]
  7. MULTI-VITAMINS [Concomitant]

REACTIONS (17)
  - ABDOMINAL DISTENSION [None]
  - ABDOMINAL PAIN [None]
  - ABDOMINAL TENDERNESS [None]
  - BLOOD UREA INCREASED [None]
  - CLEAR CELL CARCINOMA OF THE KIDNEY [None]
  - DEHYDRATION [None]
  - HAEMATOCRIT INCREASED [None]
  - HAEMOGLOBIN INCREASED [None]
  - NAUSEA [None]
  - PROTEIN URINE PRESENT [None]
  - RESPIRATORY TRACT CONGESTION [None]
  - SMALL INTESTINAL OBSTRUCTION [None]
  - TENSION HEADACHE [None]
  - URINARY TRACT INFECTION [None]
  - URINE KETONE BODY PRESENT [None]
  - URINE LEUKOCYTE ESTERASE POSITIVE [None]
  - VOMITING [None]
